FAERS Safety Report 7919896 (Version 2)
Quarter: 2012Q4

REPORT INFORMATION
  Report Type: 
  Country: FR (occurrence: FR)
  Receive Date: 20110429
  Receipt Date: 20120921
  Transmission Date: 20130627
  Serious: Yes (Hospitalization)
  Sender: FDA-Public Use
  Company Number: FR-AMGEN-FRASP2011021079

PATIENT
  Age: 63 Year
  Sex: Female

DRUGS (2)
  1. ENBREL [Suspect]
     Indication: PSORIASIS
     Dosage: 50 mg, weekly
     Route: 058
     Dates: start: 200904, end: 201010
  2. LEVOTHYROX [Concomitant]
     Dosage: UNK ug, UNK

REACTIONS (7)
  - Invasive ductal breast carcinoma [Not Recovered/Not Resolved]
  - Dysphagia [Unknown]
  - Oesophageal pain [Unknown]
  - Nausea [Unknown]
  - Cough [Unknown]
  - Urticaria [Unknown]
  - Latent tuberculosis [Not Recovered/Not Resolved]
